FAERS Safety Report 7008406-1 (Version None)
Quarter: 2010Q3

REPORT INFORMATION
  Report Type: 
  Country: None (occurrence: None)
  Receive Date: 20100922
  Receipt Date: 20100914
  Transmission Date: 20110219
  Serious: Yes (Other)
  Sender: FDA-Public Use
  Company Number: B0675040A

PATIENT
  Age: 81 Year
  Sex: Female

DRUGS (3)
  1. SEREVENT [Suspect]
     Indication: ASTHMA
     Dosage: 100MCG PER DAY
     Route: 055
  2. NEO-MINOPHAGEN-C [Suspect]
     Indication: PRODUCT USED FOR UNKNOWN INDICATION
     Route: 065
  3. THEO-DUR [Concomitant]
     Dosage: 200MG PER DAY
     Route: 048

REACTIONS (1)
  - HYPOKALAEMIA [None]
